FAERS Safety Report 6156685-5 (Version None)
Quarter: 2009Q2

REPORT INFORMATION
  Report Type: 
  Country: None (occurrence: None)
  Receive Date: 20090416
  Receipt Date: 20090409
  Transmission Date: 20091009
  Serious: Yes (Other)
  Sender: FDA-Public Use
  Company Number: CA-ASTRAZENECA-2009UW08932

PATIENT
  Sex: Female

DRUGS (9)
  1. CRESTOR [Suspect]
     Indication: BLOOD CHOLESTEROL
     Route: 048
     Dates: start: 20040101
  2. APO BACLOFEN [Concomitant]
  3. ARTHROTEC [Concomitant]
  4. ASAPHEN [Concomitant]
  5. NOVO PATOPRAZOL [Concomitant]
  6. GEN NITRO SL SPRAY [Concomitant]
  7. APO BROMAZAPEM [Concomitant]
  8. SUPEUDOL [Concomitant]
  9. TYLENOL [Concomitant]

REACTIONS (2)
  - MYALGIA [None]
  - OVERWEIGHT [None]
